FAERS Safety Report 5655304-1 (Version None)
Quarter: 2008Q1

REPORT INFORMATION
  Report Type: 
  Country: None (occurrence: None)
  Receive Date: 20080307
  Receipt Date: 20080305
  Transmission Date: 20080703
  Serious: Yes (Death, Hospitalization, Other)
  Sender: FDA-Public Use
  Company Number: IT-BRISTOL-MYERS SQUIBB COMPANY-14092407

PATIENT
  Age: 69 Year
  Sex: Female

DRUGS (6)
  1. COUMADIN [Suspect]
     Indication: CARDIAC VALVE PROSTHESIS USER
     Dosage: 1 DOSAGE FORM = 1 CAPSULE.
     Route: 048
     Dates: start: 20070501, end: 20080117
  2. TAREG [Concomitant]
     Indication: HYPERTENSION
     Route: 048
  3. FOLINA [Concomitant]
     Dosage: 1 DOSAGE FORM = 1 CAPSULE
     Route: 048
  4. POTASSIUM CHLORIDE [Concomitant]
     Indication: HYPOKALAEMIA
     Route: 048
  5. EUTIMIL [Concomitant]
  6. ATENOLOL [Concomitant]
     Indication: HYPERTENSION
     Route: 048

REACTIONS (4)
  - BLOOD PRESSURE INCREASED [None]
  - CEREBRAL HAEMORRHAGE [None]
  - COMA [None]
  - INTERNATIONAL NORMALISED RATIO DECREASED [None]
